FAERS Safety Report 22366403 (Version 1)
Quarter: 2023Q2

REPORT INFORMATION
  Report Type: Spontaneous
  Country: None (occurrence: GB)
  Receive Date: 20230525
  Receipt Date: 20230525
  Transmission Date: 20230722
  Serious: Yes (Life-Threatening, Hospitalization, Disabling, Other)
  Sender: FDA-Public Use
  Company Number: GB-Canton Laboratories, LLC-2141981

PATIENT
  Sex: Male

DRUGS (10)
  1. NAPROSYN [Suspect]
     Active Substance: NAPROXEN
     Indication: Product used for unknown indication
  2. APIXABAN [Suspect]
     Active Substance: APIXABAN
     Dates: start: 20180207
  3. AMITRIPTYLINE HYDROCHLORIDE [Concomitant]
     Active Substance: AMITRIPTYLINE HYDROCHLORIDE
  4. BENDROFLUMETHIAZIDE [Concomitant]
     Active Substance: BENDROFLUMETHIAZIDE
     Dates: start: 20221123
  5. BISOPROLOL [Concomitant]
     Active Substance: BISOPROLOL
     Dates: start: 20230301
  6. ESTRIOL [Concomitant]
     Active Substance: ESTRIOL
     Dates: start: 20221123
  7. FOSFOMYCIN [Concomitant]
     Active Substance: FOSFOMYCIN
     Dates: start: 20230227, end: 20230228
  8. LEVOTHYROXINE [Concomitant]
     Active Substance: LEVOTHYROXINE
     Dates: start: 20210628
  9. LOSARTAN [Concomitant]
     Active Substance: LOSARTAN
     Dates: start: 20210628
  10. OMEPRAZOLE [Concomitant]
     Active Substance: OMEPRAZOLE
     Dates: start: 20221123

REACTIONS (67)
  - Diarrhoea [Unknown]
  - Headache [Unknown]
  - Nausea [Recovered/Resolved]
  - Malaise [Unknown]
  - Abdominal discomfort [Unknown]
  - Hallucination [Unknown]
  - Angioedema [Unknown]
  - Malaise [Unknown]
  - COVID-19 [Unknown]
  - Dizziness [Recovered/Resolved]
  - Tinnitus [Unknown]
  - Arthralgia [Recovered/Resolved]
  - Pain of skin [Recovered/Resolved]
  - Peripheral swelling [Recovered/Resolved]
  - Disturbance in attention [Recovered/Resolved]
  - Cognitive disorder [Recovered/Resolved]
  - Memory impairment [Unknown]
  - Visual impairment [Unknown]
  - Blindness [Unknown]
  - Diplopia [Unknown]
  - Vasculitis [Unknown]
  - Carotid artery occlusion [Unknown]
  - Transient ischaemic attack [Recovered/Resolved]
  - Pruritus genital [Unknown]
  - Sleep terror [Unknown]
  - Fatigue [Unknown]
  - Vomiting [Recovered/Resolved]
  - Ventricular tachycardia [Unknown]
  - Pericarditis [Unknown]
  - Cardiospasm [Unknown]
  - Dyspnoea [Unknown]
  - Atrial tachycardia [Unknown]
  - Anxiety [Unknown]
  - Muscular weakness [Unknown]
  - Feeling abnormal [Unknown]
  - Insomnia [Unknown]
  - Heart rate increased [Unknown]
  - Muscle twitching [Unknown]
  - Abdominal pain [Unknown]
  - Dehydration [Unknown]
  - Hyperhidrosis [Unknown]
  - Rash papular [Unknown]
  - Lip swelling [Unknown]
  - Pruritus [Unknown]
  - Palmoplantar keratoderma [Unknown]
  - Dry skin [Unknown]
  - Myocardial infarction [Unknown]
  - Chest pain [Unknown]
  - Palpitations [Unknown]
  - Tachycardia [Unknown]
  - Subarachnoid haemorrhage [Unknown]
  - Pain [Unknown]
  - Anosmia [Unknown]
  - Eye pruritus [Unknown]
  - Facial pain [Unknown]
  - Back pain [Unknown]
  - Adverse drug reaction [Unknown]
  - Blood glucose increased [Unknown]
  - Amnesia [Unknown]
  - Immunisation [Unknown]
  - Alopecia [Unknown]
  - Pyrexia [Recovered/Resolved]
  - Tension headache [Unknown]
  - Migraine [Unknown]
  - Intentional product misuse [Unknown]
  - Intentional product use issue [Unknown]
  - Off label use [Unknown]
